FAERS Safety Report 16652096 (Version 1)
Quarter: 2019Q3

REPORT INFORMATION
  Report Type: Spontaneous
  Country: US (occurrence: US)
  Receive Date: 20190730
  Receipt Date: 20190730
  Transmission Date: 20191004
  Serious: No
  Sender: FDA-Public Use
  Company Number: None

PATIENT
  Age: 48 Year
  Sex: Male
  Weight: 78.3 kg

DRUGS (8)
  1. ATORVASTATIN [Concomitant]
     Active Substance: ATORVASTATIN
  2. TRIAMCINOLONE [Suspect]
     Active Substance: TRIAMCINOLONE
     Dosage: ?          QUANTITY:2 INJECTION(S);OTHER FREQUENCY:JUNE 6, 17, 2019;?
     Route: 008
  3. CLONAZEPAM. [Concomitant]
     Active Substance: CLONAZEPAM
  4. LAMOTRIGINE. [Concomitant]
     Active Substance: LAMOTRIGINE
  5. VITAMIN D [Concomitant]
     Active Substance: VITAMIN D NOS
  6. TYLENOL [Concomitant]
     Active Substance: ACETAMINOPHEN
  7. MELOXICAM. [Concomitant]
     Active Substance: MELOXICAM
  8. MIRTAZEPINE [Concomitant]
     Active Substance: MIRTAZAPINE

REACTIONS (4)
  - Off label use [None]
  - Arthralgia [None]
  - Gait inability [None]
  - Pain in extremity [None]

NARRATIVE: CASE EVENT DATE: 20190606
